FAERS Safety Report 8159575 (Version 5)
Quarter: 2014Q3

REPORT INFORMATION
  Report Type: Report from Study
  Country: IT (occurrence: IT)
  Receive Date: 20110928
  Receipt Date: 20140908
  Transmission Date: 20150326
  Serious: Yes (Death, Hospitalization, Disabling, Other)
  Sender: FDA-Public Use
  Company Number: PHHO2010IT17471

PATIENT

DRUGS (2)
  1. EVEROLIMUS [Suspect]
     Active Substance: EVEROLIMUS
     Indication: TRANSPLANT
     Dosage: 1.5 MG, BID
     Route: 048
     Dates: start: 20000423, end: 20020319
  2. EVEROLIMUS [Suspect]
     Active Substance: EVEROLIMUS
     Dosage: 0.75 MG, BID
     Route: 048
     Dates: start: 20060203

REACTIONS (3)
  - Cerebral haemorrhage [Fatal]
  - Invasive ductal breast carcinoma [Fatal]
  - Metastases to bone [Fatal]

NARRATIVE: CASE EVENT DATE: 20020320
